FAERS Safety Report 16969231 (Version 2)
Quarter: 2020Q1

REPORT INFORMATION
  Report Type: Report from Study
  Country: CA (occurrence: CA)
  Receive Date: 20191029
  Receipt Date: 20200131
  Transmission Date: 20200409
  Serious: Yes (Other)
  Sender: FDA-Public Use
  Company Number: CA-ROCHE-2152738

PATIENT
  Age: 37 Year
  Sex: Female

DRUGS (2)
  1. OCREVUS [Suspect]
     Active Substance: OCRELIZUMAB
     Indication: RELAPSING-REMITTING MULTIPLE SCLEROSIS
     Dosage: 300 MG AT DAY 0 AND 14, THEN 600 MG EVERY 6 MONTH
     Route: 042
     Dates: start: 20180706
  2. OCREVUS [Suspect]
     Active Substance: OCRELIZUMAB
     Route: 042
     Dates: start: 20180720

REACTIONS (21)
  - Bronchitis [Unknown]
  - Infusion related reaction [Recovered/Resolved]
  - Nausea [Recovered/Resolved]
  - Pyrexia [Recovered/Resolved]
  - Cough [Not Recovered/Not Resolved]
  - Burning sensation [Not Recovered/Not Resolved]
  - Feeling abnormal [Not Recovered/Not Resolved]
  - Toothache [Unknown]
  - Irritability [Recovering/Resolving]
  - Affective disorder [Unknown]
  - Musculoskeletal discomfort [Recovered/Resolved]
  - Lymphadenopathy [Recovering/Resolving]
  - Thermal burn [Recovered/Resolved]
  - Insomnia [Recovering/Resolving]
  - Influenza like illness [Recovered/Resolved]
  - Tongue injury [Not Recovered/Not Resolved]
  - Increased upper airway secretion [Not Recovered/Not Resolved]
  - Glossodynia [Not Recovered/Not Resolved]
  - Mental disorder [Unknown]
  - Oropharyngeal pain [Recovering/Resolving]
  - Aphonia [Recovering/Resolving]

NARRATIVE: CASE EVENT DATE: 20180706
